FAERS Safety Report 17433788 (Version 1)
Quarter: 2020Q1

REPORT INFORMATION
  Report Type: Spontaneous
  Country: US (occurrence: US)
  Receive Date: 20190909
  Receipt Date: 20190909
  Transmission Date: 20200409
  Serious: No
  Sender: FDA-Public Use
  Company Number: None

PATIENT
  Age: 19 Year
  Sex: Male

DRUGS (2)
  1. THC CARTRIDGE BRANDS: DANK VAPES. DOUGHBOY. GAS TANK [Suspect]
     Active Substance: .DELTA.8-TETRAHYDROCANNABINOL\DEVICE\HERBALS
  2. ZOLOFT [Concomitant]
     Active Substance: SERTRALINE HYDROCHLORIDE

REACTIONS (13)
  - Paranasal sinus discomfort [None]
  - Chills [None]
  - Pulmonary congestion [None]
  - Throat irritation [None]
  - Fatigue [None]
  - Vomiting [None]
  - Oropharyngeal pain [None]
  - Dyspnoea exertional [None]
  - Productive cough [None]
  - Pyrexia [None]
  - Upper respiratory tract infection [None]
  - Viral infection [None]
  - Acute sinusitis [None]

NARRATIVE: CASE EVENT DATE: 20190120
